FAERS Safety Report 17829686 (Version 1)
Quarter: 2020Q2

REPORT INFORMATION
  Report Type: Spontaneous
  Country: CN (occurrence: CN)
  Receive Date: 20200527
  Receipt Date: 20200527
  Transmission Date: 20200714
  Serious: Yes (Other)
  Sender: FDA-Public Use
  Company Number: CN-PFIZER INC-2020207965

PATIENT
  Age: 58 Year
  Sex: Female
  Weight: 54 kg

DRUGS (2)
  1. TAZOCIN [Suspect]
     Active Substance: PIPERACILLIN SODIUM\TAZOBACTAM SODIUM
     Indication: PANCREATITIS ACUTE
     Dosage: 4.5 G, 3X/DAY
     Route: 040
     Dates: start: 20200513, end: 20200520
  2. SODIUM CHLORIDE. [Concomitant]
     Active Substance: SODIUM CHLORIDE
     Indication: PANCREATITIS ACUTE
     Dosage: 40 ML, 3X/DAY
     Route: 040
     Dates: start: 20200513, end: 20200520

REACTIONS (6)
  - Rash [Recovering/Resolving]
  - Pruritus [Recovering/Resolving]
  - Erythema of eyelid [Recovering/Resolving]
  - Erythema [Recovering/Resolving]
  - Drug hypersensitivity [Recovering/Resolving]
  - Periorbital oedema [Recovering/Resolving]

NARRATIVE: CASE EVENT DATE: 20200520
